FAERS Safety Report 20500813 (Version 2)
Quarter: 2022Q3

REPORT INFORMATION
  Report Type: Spontaneous
  Country: JP (occurrence: JP)
  Receive Date: 20220222
  Receipt Date: 20220707
  Transmission Date: 20221026
  Serious: No
  Sender: FDA-Public Use
  Company Number: JP-GLAXOSMITHKLINE-JP2022JPN029889

PATIENT

DRUGS (3)
  1. SOTROVIMAB [Suspect]
     Active Substance: SOTROVIMAB
     Indication: COVID-19
     Dosage: 500 MG
     Route: 041
     Dates: start: 20220215, end: 20220215
  2. CALONAL [Suspect]
     Active Substance: ACETAMINOPHEN
     Indication: Pyrexia
     Dosage: 400 MG
     Route: 048
  3. MAGNESIUM OXIDE [Suspect]
     Active Substance: MAGNESIUM OXIDE
     Indication: Constipation
     Dosage: 1980 MG
     Route: 048

REACTIONS (1)
  - Exposure during pregnancy [Unknown]
